FAERS Safety Report 18339003 (Version 4)
Quarter: 2021Q1

REPORT INFORMATION
  Report Type: Report from Study
  Country: AT (occurrence: AT)
  Receive Date: 20201002
  Receipt Date: 20210115
  Transmission Date: 20210419
  Serious: Yes (Other)
  Sender: FDA-Public Use
  Company Number: AT-PFIZER INC-2020378402

PATIENT
  Age: 61 Year
  Sex: Male
  Weight: 54 kg

DRUGS (4)
  1. RITUXIMAB. [Suspect]
     Active Substance: RITUXIMAB
     Indication: IMMUNOSUPPRESSION
  2. EMICIZUMAB. [Concomitant]
     Active Substance: EMICIZUMAB
     Dosage: 3 MG/KG SC. WEEKLY FOR 4 WEEKS, FOLLOWED BY 1.5 MG/KG WEEKLY
     Route: 058
  3. RITUXIMAB. [Suspect]
     Active Substance: RITUXIMAB
     Indication: ACQUIRED HAEMOPHILIA
     Dosage: 650 MG (4 DOSES)
     Route: 065
     Dates: start: 20180511, end: 20180525
  4. EMICIZUMAB. [Concomitant]
     Active Substance: EMICIZUMAB
     Indication: ACQUIRED HAEMOPHILIA
     Dosage: 14/JUN/2018: 105 MG TOTAL 6 APPLICATIONS
     Route: 058
     Dates: start: 20180510, end: 20180614

REACTIONS (1)
  - Neutropenic sepsis [Recovered/Resolved]
